FAERS Safety Report 5346302-6 (Version None)
Quarter: 2007Q2

REPORT INFORMATION
  Report Type: 
  Country: None (occurrence: None)
  Receive Date: 20070430
  Receipt Date: 20070131
  Transmission Date: 20071010
  Serious: No
  Sender: FDA-Public Use
  Company Number: 260510

PATIENT
  Age: 53 Year
  Sex: Male
  Weight: 118.8 kg

DRUGS (7)
  1. LEVEMIR [Suspect]
     Indication: INSULIN-REQUIRING TYPE II DIABETES MELLITUS
     Dosage: SUBCUTANEOUS
     Route: 058
     Dates: start: 20070109, end: 20070123
  2. AVANDIA [Concomitant]
  3. METFORMIN /00082702/ (METFORMIN HYDROCHLORIDE) [Concomitant]
  4. GLYBURIDE [Concomitant]
  5. METOPROLOL /00376902/ (METOPROLOL TARTRATE) [Concomitant]
  6. LIPITOR [Concomitant]
  7. ASPIRIN [Concomitant]

REACTIONS (3)
  - ABDOMINAL PAIN UPPER [None]
  - INJECTION SITE URTICARIA [None]
  - MUSCLE SPASMS [None]
